FAERS Safety Report 19927855 (Version 1)
Quarter: 2021Q4

REPORT INFORMATION
  Report Type: Spontaneous
  Country: US (occurrence: US)
  Receive Date: 20211005
  Receipt Date: 20211005
  Transmission Date: 20220303
  Serious: Yes (Hospitalization)
  Sender: FDA-Public Use
  Company Number: None

PATIENT
  Age: 38 Year
  Sex: Female

DRUGS (6)
  1. TADALAFIL [Suspect]
     Active Substance: TADALAFIL
     Indication: Pulmonary arterial hypertension
     Route: 048
     Dates: start: 20190409
  2. FLOLAN STERILE CILUENT [Concomitant]
  3. REMODULIN [Concomitant]
     Active Substance: TREPROSTINIL
  4. TADALAFIL [Concomitant]
     Active Substance: TADALAFIL
  5. CADD LEGACY PUMP [Concomitant]
  6. OPSUMIT [Concomitant]
     Active Substance: MACITENTAN

REACTIONS (4)
  - Device malfunction [None]
  - Postoperative wound infection [None]
  - Dyspnoea [None]
  - Fatigue [None]

NARRATIVE: CASE EVENT DATE: 20210928
